FAERS Safety Report 21590447 (Version 1)
Quarter: 2022Q4

REPORT INFORMATION
  Report Type: Spontaneous
  Country: DE (occurrence: DE)
  Receive Date: 20221114
  Receipt Date: 20221114
  Transmission Date: 20230112
  Serious: Yes (Life-Threatening, Hospitalization)
  Sender: FDA-Public Use
  Company Number: DE-ADRED-08053-01

PATIENT
  Age: 47 Year
  Sex: Male
  Weight: 83 kg

DRUGS (4)
  1. INSULIN GLARGINE [Suspect]
     Active Substance: INSULIN GLARGINE
     Indication: Product used for unknown indication
     Dosage: 100 IE/ML, 0-0-0-22, PRE-FILLED SYRINGES
     Route: 058
  2. INSULIN LISPRO [Suspect]
     Active Substance: INSULIN LISPRO
     Indication: Product used for unknown indication
     Dosage: 100 IE/ML, 6-5-5-0, PRE FILLED SYRINGE
     Route: 058
  3. RAMIPRIL [Concomitant]
     Active Substance: RAMIPRIL
     Dosage: 2.5 MILLIGRAM, QD, 1-0-0-0, TABLET
     Route: 048
  4. PANTOPRAZOLE SODIUM [Concomitant]
     Active Substance: PANTOPRAZOLE SODIUM
     Dosage: 40 MILLIGRAM, QD, 1-0-0-0, TABLET
     Route: 048

REACTIONS (8)
  - Nausea [Unknown]
  - Diabetes mellitus inadequate control [Unknown]
  - Hyperglycaemia [Unknown]
  - Diabetic ketoacidosis [Unknown]
  - Abdominal pain [Unknown]
  - Vomiting [Unknown]
  - Dyspepsia [Unknown]
  - Product monitoring error [Unknown]
